FAERS Safety Report 11977790 (Version 1)
Quarter: 2016Q1

REPORT INFORMATION
  Report Type: Spontaneous
  Country: US (occurrence: US)
  Receive Date: 20160129
  Receipt Date: 20160129
  Transmission Date: 20160526
  Serious: Yes (Other)
  Sender: FDA-Public Use
  Company Number: US-PROCTER_AND_GAMBLE-GS16005122

PATIENT
  Age: 65 Year
  Sex: Female

DRUGS (1)
  1. CREST 3D WHITE ARCTIC FRESH [Suspect]
     Active Substance: SODIUM FLUORIDE
     Dosage: THIN LINE LESS THAN AN INCH 1-2 X DAY
     Route: 002

REACTIONS (3)
  - Tooth injury [Not Recovered/Not Resolved]
  - Dental caries [Not Recovered/Not Resolved]
  - Tooth extraction [Recovered/Resolved]
